FAERS Safety Report 10566343 (Version 1)
Quarter: 2014Q4

REPORT INFORMATION
  Report Type: Report from Study
  Country: AU (occurrence: AU)
  Receive Date: 20141105
  Receipt Date: 20141105
  Transmission Date: 20150529
  Serious: Yes (Hospitalization, Other)
  Sender: FDA-Public Use
  Company Number: PHHY2014AU143356

PATIENT
  Age: 54 Year
  Sex: Male
  Weight: 85 kg

DRUGS (2)
  1. EFFEXOR [Concomitant]
     Active Substance: VENLAFAXINE HYDROCHLORIDE
     Indication: DEPRESSION
     Dosage: 150 MG, DAILY
     Route: 048
     Dates: start: 2008
  2. CLOZARIL [Suspect]
     Active Substance: CLOZAPINE
     Indication: SCHIZOPHRENIA
     Dosage: 500 MG, NOCTE
     Route: 048
     Dates: start: 20080311

REACTIONS (8)
  - Aggression [Unknown]
  - Sedation [Unknown]
  - Schizophrenia [Not Recovered/Not Resolved]
  - Abnormal behaviour [Unknown]
  - Hypophagia [Unknown]
  - Psychotic disorder [Unknown]
  - Joint dislocation [Unknown]
  - Fatigue [Unknown]

NARRATIVE: CASE EVENT DATE: 20141016
